FAERS Safety Report 22377790 (Version 5)
Quarter: 2023Q4

REPORT INFORMATION
  Report Type: Report from Study
  Country: HR (occurrence: HR)
  Receive Date: 20230529
  Receipt Date: 20231102
  Transmission Date: 20240110
  Serious: Yes (Death, Hospitalization)
  Sender: FDA-Public Use
  Company Number: HR-002147023-NVSC2023HR118372

PATIENT
  Age: 81 Year
  Sex: Male
  Weight: 78 kg

DRUGS (1)
  1. TABRECTA [Suspect]
     Active Substance: CAPMATINIB
     Indication: Lung adenocarcinoma
     Dosage: 400 MG
     Route: 048
     Dates: start: 20230504, end: 20230504

REACTIONS (4)
  - Death [Fatal]
  - Malaise [Recovering/Resolving]
  - Decreased appetite [Recovering/Resolving]
  - Nausea [Recovering/Resolving]

NARRATIVE: CASE EVENT DATE: 20230505
